FAERS Safety Report 23143554 (Version 1)
Quarter: 2023Q4

REPORT INFORMATION
  Report Type: Spontaneous
  Country: FR (occurrence: FR)
  Receive Date: 20231103
  Receipt Date: 20231103
  Transmission Date: 20240110
  Serious: Yes (Hospitalization, Other)
  Sender: FDA-Public Use
  Company Number: FR-MYLANLABS-2023M1115636

PATIENT
  Age: 5 Year
  Sex: Male
  Weight: 18.4 kg

DRUGS (4)
  1. AMBISOME [Suspect]
     Active Substance: AMPHOTERICIN B
     Indication: Osteitis
     Dosage: 190 MILLIGRAM, QD
     Route: 042
     Dates: start: 20230810, end: 20230911
  2. VANCOMYCIN [Suspect]
     Active Substance: VANCOMYCIN
     Indication: Enterococcal infection
     Dosage: 1.75 GRAM, QD
     Route: 042
     Dates: start: 20230826, end: 20230830
  3. MEROPENEM [Suspect]
     Active Substance: MEROPENEM
     Indication: Osteitis
     Dosage: 800 MILLIGRAM, TID
     Route: 042
     Dates: start: 20230731, end: 20230911
  4. CIPROFLOXACIN [Suspect]
     Active Substance: CIPROFLOXACIN
     Indication: Osteitis
     Dosage: 400 MILLIGRAM, BID
     Route: 048
     Dates: start: 20230731, end: 20230911

REACTIONS (1)
  - Neutropenia [Recovered/Resolved]

NARRATIVE: CASE EVENT DATE: 20230907
